FAERS Safety Report 12320426 (Version 1)
Quarter: 2016Q2

REPORT INFORMATION
  Report Type: Spontaneous
  Country: EE (occurrence: EE)
  Receive Date: 20160501
  Receipt Date: 20160501
  Transmission Date: 20160815
  Serious: Yes (Other)
  Sender: FDA-Public Use
  Company Number: EE-BAXALTA-2016BLT002586

PATIENT
  Age: 19 Year
  Sex: Male
  Weight: 90 kg

DRUGS (2)
  1. FEIBA [Suspect]
     Active Substance: ANTI-INHIBITOR COAGULANT COMPLEX
     Dosage: 4000 IU, 3X A WEEK
     Route: 042
     Dates: start: 201601
  2. FEIBA [Suspect]
     Active Substance: ANTI-INHIBITOR COAGULANT COMPLEX
     Indication: HAEMOPHILIA A WITH ANTI FACTOR VIII
     Dosage: 4000 IU, 2X A WEEK
     Route: 042
     Dates: start: 20151020, end: 201601

REACTIONS (4)
  - Anti factor VIII antibody increased [Not Recovered/Not Resolved]
  - Haemorrhage [Not Recovered/Not Resolved]
  - Coagulation factor IX level decreased [Not Recovered/Not Resolved]
  - Coagulation factor XI level decreased [Not Recovered/Not Resolved]

NARRATIVE: CASE EVENT DATE: 201510
